FAERS Safety Report 6467068-2 (Version None)
Quarter: 2009Q4

REPORT INFORMATION
  Report Type: 
  Country: None (occurrence: None)
  Receive Date: 20091202
  Receipt Date: 20091125
  Transmission Date: 20100525
  Serious: Yes (Other)
  Sender: FDA-Public Use
  Company Number: US-PFIZER INC-2009303766

PATIENT
  Age: 62 Year
  Sex: Male
  Weight: 85 kg

DRUGS (6)
  1. SOLU-MEDROL [Suspect]
     Indication: TRANSPLANT REJECTION
     Dosage: FREQUENCY: 2X/DAY,
     Dates: start: 20091122
  2. SOLU-MEDROL [Suspect]
     Indication: IMMUNOSUPPRESSION
  3. CYTOGAM [Suspect]
     Indication: ANTIVIRAL PROPHYLAXIS
     Route: 042
     Dates: start: 20091122, end: 20091122
  4. GANCICLOVIR [Suspect]
     Dates: start: 20091122, end: 20091123
  5. INSULIN [Concomitant]
     Dosage: UNK
  6. PROTONIX [Concomitant]
     Dosage: UNK

REACTIONS (3)
  - ANAPHYLACTIC REACTION [None]
  - HAEMORRHAGIC STROKE [None]
  - PULMONARY EMBOLISM [None]
